FAERS Safety Report 4733364-X (Version None)
Quarter: 2005Q3

REPORT INFORMATION
  Report Type: 
  Country: None (occurrence: None)
  Receive Date: 20050725
  Receipt Date: 20050524
  Transmission Date: 20060218
  Serious: Yes (Other)
  Sender: FDA-Public Use
  Company Number: USA-2005-0020363

PATIENT
  Sex: Male

DRUGS (1)
  1. MS CONTIN [Suspect]
     Dosage: 30 MG, DAILY, OTHER
     Route: 050

REACTIONS (2)
  - DRUG ABUSER [None]
  - DRUG DEPENDENCE [None]
